FAERS Safety Report 7267938-1 (Version None)
Quarter: 2011Q1

REPORT INFORMATION
  Report Type: 
  Country: None (occurrence: None)
  Receive Date: 20110201
  Receipt Date: 20110128
  Transmission Date: 20110831
  Serious: Yes (Other)
  Sender: FDA-Public Use
  Company Number: US-ABBOTT-11P-163-0701095-00

PATIENT
  Sex: Male

DRUGS (2)
  1. HUMIRA [Suspect]
     Indication: BONE MARROW DISORDER
  2. HUMIRA [Suspect]
     Indication: OSTEITIS
     Route: 058
     Dates: start: 20110101, end: 20110101

REACTIONS (2)
  - NEUROLOGICAL SYMPTOM [None]
  - HYPOAESTHESIA [None]
